FAERS Safety Report 5824652-4 (Version None)
Quarter: 2008Q3

REPORT INFORMATION
  Report Type: 
  Country: None (occurrence: None)
  Receive Date: 20080728
  Receipt Date: 20080715
  Transmission Date: 20090109
  Serious: Yes (Hospitalization)
  Sender: FDA-Public Use
  Company Number: FR-EISAI MEDIAL RESEARCH-E3810-02022-SPO-FR

PATIENT
  Sex: Female

DRUGS (4)
  1. RABEPRAZOLE SODIUM [Suspect]
     Indication: ABDOMINAL PAIN UPPER
     Route: 048
     Dates: start: 20080523, end: 20080524
  2. FELDENE [Suspect]
     Indication: BACK PAIN
     Dosage: UNKNOWN
     Route: 048
     Dates: start: 20080520, end: 20080524
  3. SPASFON [Concomitant]
     Dates: start: 20080523
  4. IBUPROFEN [Concomitant]
     Indication: BACK PAIN

REACTIONS (5)
  - ARTHRALGIA [None]
  - GENERAL PHYSICAL HEALTH DETERIORATION [None]
  - MYALGIA [None]
  - RASH GENERALISED [None]
  - THROMBOCYTOPENIA [None]
